FAERS Safety Report 8140223-1 (Version None)
Quarter: 2012Q1

REPORT INFORMATION
  Report Type: 
  Country: None (occurrence: None)
  Receive Date: 20120216
  Receipt Date: 20120207
  Transmission Date: 20120608
  Serious: No
  Sender: FDA-Public Use
  Company Number: US-BIOGENIDEC-2012BI005116

PATIENT
  Age: 29 Year
  Sex: Female

DRUGS (4)
  1. AVONEX [Concomitant]
     Indication: MULTIPLE SCLEROSIS
     Route: 030
     Dates: start: 20060111
  2. TYSABRI [Suspect]
     Indication: MULTIPLE SCLEROSIS
     Route: 042
     Dates: start: 20070614, end: 20080226
  3. TYSABRI [Suspect]
     Route: 042
     Dates: start: 20081202, end: 20120109
  4. AVONEX [Concomitant]
     Route: 030

REACTIONS (1)
  - POOR VENOUS ACCESS [None]
